FAERS Safety Report 20281581 (Version 4)
Quarter: 2022Q1

REPORT INFORMATION
  Report Type: Spontaneous
  Country: JP (occurrence: JP)
  Receive Date: 20220103
  Receipt Date: 20220205
  Transmission Date: 20220423
  Serious: Yes (Death, Hospitalization)
  Sender: FDA-Public Use
  Company Number: JP-ACTELION-A-CH2017-159740

PATIENT
  Age: 25 Year
  Sex: Male
  Weight: 73 kg

DRUGS (28)
  1. UPTRAVI [Suspect]
     Active Substance: SELEXIPAG
     Indication: Pulmonary arterial hypertension
     Dosage: 0.6 MG, BID
     Route: 048
     Dates: start: 20170803, end: 20170809
  2. UPTRAVI [Suspect]
     Active Substance: SELEXIPAG
     Dosage: 0.8 MG, BID
     Route: 048
     Dates: start: 20170810, end: 20170830
  3. UPTRAVI [Suspect]
     Active Substance: SELEXIPAG
     Dosage: 1.0 MG, BID
     Route: 048
     Dates: start: 20170831, end: 20170927
  4. UPTRAVI [Suspect]
     Active Substance: SELEXIPAG
     Dosage: 1.2 MG, BID
     Route: 048
     Dates: start: 20170928, end: 20171025
  5. UPTRAVI [Suspect]
     Active Substance: SELEXIPAG
     Dosage: 1.4 MG, BID
     Route: 048
     Dates: start: 20171026, end: 20171108
  6. UPTRAVI [Suspect]
     Active Substance: SELEXIPAG
     Dosage: 1.2 MG, BID
     Route: 048
     Dates: start: 20171109, end: 20171213
  7. UPTRAVI [Suspect]
     Active Substance: SELEXIPAG
     Dosage: 1.4 MG, BID
     Route: 048
     Dates: start: 20171214, end: 20180403
  8. UPTRAVI [Suspect]
     Active Substance: SELEXIPAG
     Dosage: 1.6 MG, BID
     Route: 048
     Dates: start: 20180404, end: 20191126
  9. UPTRAVI [Suspect]
     Active Substance: SELEXIPAG
     Route: 048
     Dates: start: 20191127, end: 20200324
  10. UPTRAVI [Suspect]
     Active Substance: SELEXIPAG
     Route: 048
     Dates: start: 20200325, end: 20200512
  11. UPTRAVI [Suspect]
     Active Substance: SELEXIPAG
     Dosage: THERAPY END DATE: //2021
     Route: 048
     Dates: start: 20210224
  12. UPTRAVI [Suspect]
     Active Substance: SELEXIPAG
     Dosage: THERAPY START DATE: //2021
     Route: 048
  13. UPTRAVI [Suspect]
     Active Substance: SELEXIPAG
     Route: 048
     Dates: start: 20201106
  14. AMBRISENTAN [Suspect]
     Active Substance: AMBRISENTAN
     Indication: Pulmonary arterial hypertension
     Dosage: 5 MG, QD
     Route: 048
     Dates: start: 20170712, end: 20180913
  15. AMBRISENTAN [Suspect]
     Active Substance: AMBRISENTAN
     Dosage: 10 MG, QD
     Route: 048
     Dates: start: 20170914
  16. REVATIO [Suspect]
     Active Substance: SILDENAFIL CITRATE
     Indication: Pulmonary arterial hypertension
     Route: 048
  17. AMLODIPINE [Concomitant]
     Active Substance: AMLODIPINE BESYLATE
     Indication: Hypertension
     Dosage: 7.5 MG, QD
     Dates: end: 20170912
  18. FOSRENOL [Concomitant]
     Active Substance: LANTHANUM CARBONATE
     Indication: Renal failure
     Dosage: 750 MG, QD
     Dates: end: 20180904
  19. CANDESARTAN [Concomitant]
     Active Substance: CANDESARTAN
     Indication: Hypertension
     Dosage: 8 MG, QD
     Dates: end: 20180123
  20. BIXALOMER [Concomitant]
     Active Substance: BIXALOMER
     Indication: Renal failure
     Dosage: 750 MG, QD
     Dates: end: 20170822
  21. BIXALOMER [Concomitant]
     Active Substance: BIXALOMER
     Dosage: 750 MG, QD
     Dates: start: 20170913, end: 20180904
  22. BISOPROLOL FUMARATE [Concomitant]
     Active Substance: BISOPROLOL FUMARATE
     Indication: Hypertension
     Dosage: 5 MG, QD
     Dates: end: 20171226
  23. BISOPROLOL FUMARATE [Concomitant]
     Active Substance: BISOPROLOL FUMARATE
     Dosage: 0.625 MG, QD
     Dates: start: 20171227
  24. FERRIC CITRATE ANHYDROUS [Concomitant]
     Active Substance: FERRIC CITRATE ANHYDROUS
     Indication: Renal failure
     Dosage: 750 MG, QD
     Dates: start: 20170823, end: 20170912
  25. RENAGEL [Concomitant]
     Active Substance: SEVELAMER HYDROCHLORIDE
     Indication: Renal failure
     Dosage: 750 MG, QD
     Dates: start: 20171101
  26. CANDESARTAN CILEXETIL [Concomitant]
     Active Substance: CANDESARTAN CILEXETIL
     Indication: Hypertension
     Dosage: 1 MG, QD
     Dates: start: 20180124
  27. SUCROFERRIC OXYHYDROXIDE [Concomitant]
     Active Substance: SUCROFERRIC OXYHYDROXIDE
     Indication: Renal failure
     Dosage: 750 MG, QD
     Dates: start: 20181003
  28. DOBUTAMINE [Concomitant]
     Active Substance: DOBUTAMINE HYDROCHLORIDE

REACTIONS (13)
  - Right ventricular failure [Fatal]
  - Dialysis hypotension [Fatal]
  - Visceral oedema [Fatal]
  - Syncope [Not Recovered/Not Resolved]
  - Oedema peripheral [Unknown]
  - Diarrhoea [Recovered/Resolved]
  - Hypotension [Recovered/Resolved]
  - Headache [Recovered/Resolved]
  - Diarrhoea [Recovered/Resolved]
  - Diarrhoea [Recovering/Resolving]
  - Diarrhoea [Recovering/Resolving]
  - Diarrhoea [Recovered/Resolved]
  - Hypotension [Not Recovered/Not Resolved]

NARRATIVE: CASE EVENT DATE: 20170803
